FAERS Safety Report 9093257 (Version 1)
Quarter: 2013Q1

REPORT INFORMATION
  Report Type: Spontaneous
  Country: US (occurrence: None)
  Receive Date: 20130122
  Receipt Date: 20130122
  Transmission Date: 20140127
  Serious: Yes (Death)
  Sender: FDA-Public Use
  Company Number: 1552589

PATIENT
  Age: 50 Year
  Sex: Male

DRUGS (3)
  1. (BUPIVACAINE HYDROCHLORIDE) [Suspect]
     Indication: ARTHROSCOPY
     Dosage: 30 ML,  UNKNOWN,  UNKNOWN?UNKNOWN
  2. FENTANYL [Concomitant]
  3. MIDAZOLAM [Concomitant]

REACTIONS (3)
  - Cardiac arrest [None]
  - Medication error [None]
  - Poisoning [None]
